FAERS Safety Report 9539144 (Version 1)
Quarter: 2013Q3

REPORT INFORMATION
  Report Type: Spontaneous
  Country: US (occurrence: US)
  Receive Date: 20130920
  Receipt Date: 20130920
  Transmission Date: 20140515
  Serious: No
  Sender: FDA-Public Use
  Company Number: US-TEVA-433315USA

PATIENT
  Age: 73 Year
  Sex: Male

DRUGS (1)
  1. QNASL [Suspect]
     Indication: RHINITIS ALLERGIC
     Route: 045
     Dates: start: 20130903

REACTIONS (1)
  - Skin discolouration [Not Recovered/Not Resolved]
